FAERS Safety Report 17664533 (Version 1)
Quarter: 2020Q2

REPORT INFORMATION
  Report Type: Spontaneous
  Country: US (occurrence: US)
  Receive Date: 20200413
  Receipt Date: 20200413
  Transmission Date: 20200713
  Serious: Yes (Hospitalization)
  Sender: FDA-Public Use
  Company Number: None

PATIENT
  Age: 66 Year
  Sex: Male
  Weight: 96 kg

DRUGS (1)
  1. CLOZAPINE 100MG TAB (GOLDEN STATE) [Suspect]
     Active Substance: CLOZAPINE
     Indication: PULMONARY EMBOLISM
     Route: 048
     Dates: start: 20190924, end: 20191231

REACTIONS (1)
  - Pulmonary embolism [None]

NARRATIVE: CASE EVENT DATE: 20191230
